FAERS Safety Report 6978408-X (Version None)
Quarter: 2010Q3

REPORT INFORMATION
  Report Type: 
  Country: None (occurrence: None)
  Receive Date: 20100908
  Receipt Date: 20100823
  Transmission Date: 20110219
  Serious: Yes (Other)
  Sender: FDA-Public Use
  Company Number: ACO_01899_2010

PATIENT
  Age: 64 Year
  Sex: Female
  Weight: 70.3075 kg

DRUGS (6)
  1. AMPYRA [Suspect]
     Indication: GAIT DISTURBANCE
     Dosage: 10 MG BID, ORAL
     Route: 048
     Dates: start: 20100726, end: 20100801
  2. AMLODIPINE [Concomitant]
  3. PRINIVIL [Concomitant]
  4. TRILEPTAL [Concomitant]
  5. ASPIRIN [Concomitant]
  6. VITAMIN B COMPLEX CAP [Concomitant]

REACTIONS (5)
  - CONDITION AGGRAVATED [None]
  - DIZZINESS [None]
  - HYPOAESTHESIA [None]
  - NAUSEA [None]
  - TRIGEMINAL NEURALGIA [None]
